FAERS Safety Report 11327105 (Version 1)
Quarter: 2015Q3

REPORT INFORMATION
  Report Type: Spontaneous
  Country: KR (occurrence: KR)
  Receive Date: 20150731
  Receipt Date: 20150731
  Transmission Date: 20151125
  Serious: Yes (Death, Hospitalization, Other)
  Sender: FDA-Public Use
  Company Number: PHHY2015KR089620

PATIENT
  Age: 33 Year
  Sex: Male

DRUGS (4)
  1. VALPROIC ACID. [Interacting]
     Active Substance: VALPROIC ACID
     Indication: SEIZURE
     Dosage: 1200 MG, QD
     Route: 065
  2. LAMOTRIGINE. [Suspect]
     Active Substance: LAMOTRIGINE
     Indication: SEIZURE
     Dosage: 100 MG, QD
     Route: 065
  3. LEVETIRACETAM. [Concomitant]
     Active Substance: LEVETIRACETAM
     Indication: EPILEPSY
     Route: 065
  4. ARIPIPRAZOLE. [Concomitant]
     Active Substance: ARIPIPRAZOLE
     Indication: MENTAL DISORDER DUE TO A GENERAL MEDICAL CONDITION
     Dosage: 2.5 MG, QD

REACTIONS (12)
  - Coma [Unknown]
  - Erythema multiforme [Recovering/Resolving]
  - Rash [Recovered/Resolved]
  - Stevens-Johnson syndrome [Recovering/Resolving]
  - Coagulopathy [Not Recovered/Not Resolved]
  - Drug interaction [Unknown]
  - Oedema mucosal [Recovering/Resolving]
  - Hepatic encephalopathy [Not Recovered/Not Resolved]
  - Loss of consciousness [Unknown]
  - Conjunctivitis [Recovering/Resolving]
  - Hepatic failure [Fatal]
  - Pyrexia [Recovered/Resolved]
